FAERS Safety Report 8922679 (Version 1)
Quarter: 2012Q4

REPORT INFORMATION
  Report Type: 
  Country: EC (occurrence: EC)
  Receive Date: 20121123
  Receipt Date: 20121123
  Transmission Date: 20130627
  Serious: Yes (Death)
  Sender: FDA-Public Use
  Company Number: PHHY2012EC106158

PATIENT
  Sex: Female

DRUGS (1)
  1. TRILEPTAL [Suspect]
     Indication: CONVULSION
     Dosage: 4 ml, UNK
     Route: 048
     Dates: start: 200512

REACTIONS (3)
  - Congenital central nervous system anomaly [Fatal]
  - Nausea [Unknown]
  - Vomiting [Unknown]
